FAERS Safety Report 5295004-3 (Version None)
Quarter: 2007Q2

REPORT INFORMATION
  Report Type: 
  Country: None (occurrence: None)
  Receive Date: 20070409
  Receipt Date: 20070409
  Transmission Date: 20071010
  Serious: Yes (Other)
  Sender: FDA-Public Use
  Company Number: None

PATIENT
  Age: 75 Year
  Sex: Male
  Weight: 129.7 kg

DRUGS (1)
  1. SEPTRA [Suspect]

REACTIONS (2)
  - DYSPNOEA [None]
  - PRURITUS [None]
